FAERS Safety Report 12058694 (Version 1)
Quarter: 2016Q1

REPORT INFORMATION
  Report Type: Spontaneous
  Country: US (occurrence: None)
  Receive Date: 20160208
  Receipt Date: 20160208
  Transmission Date: 20160526
  Serious: Yes (Other)
  Sender: FDA-Public Use
  Company Number: None

PATIENT
  Age: 67 Year
  Sex: Female

DRUGS (1)
  1. IBRANCE [Suspect]
     Active Substance: PALBOCICLIB
     Indication: BREAST CANCER FEMALE
     Dosage: 1 OD X 21 DAYS
     Route: 048
     Dates: start: 20160118, end: 20160202

REACTIONS (2)
  - White blood cell count decreased [None]
  - Alopecia [None]

NARRATIVE: CASE EVENT DATE: 20160204
